FAERS Safety Report 21871976 (Version 2)
Quarter: 2023Q1

REPORT INFORMATION
  Report Type: Spontaneous
  Country: GB (occurrence: GB)
  Receive Date: 20230117
  Receipt Date: 20230223
  Transmission Date: 20230417
  Serious: Yes (Hospitalization, Other)
  Sender: FDA-Public Use
  Company Number: None

PATIENT
  Sex: Female

DRUGS (41)
  1. CETIRIZINE HYDROCHLORIDE [Suspect]
     Active Substance: CETIRIZINE HYDROCHLORIDE
     Indication: Product used for unknown indication
     Dosage: 10 MG, ONCE DAILY (QD) (MORNING)
     Route: 048
  2. ISOSORBIDE MONONITRATE [Suspect]
     Active Substance: ISOSORBIDE MONONITRATE
     Indication: Product used for unknown indication
     Dosage: 50 MILLIGRAM, ONCE DAILY (QD) (MORNING)
     Route: 048
  3. ISOSORBIDE MONONITRATE [Suspect]
     Active Substance: ISOSORBIDE MONONITRATE
     Dosage: 30 MILLIGRAM, ONCE DAILY (QD)
  4. APIXABAN [Suspect]
     Active Substance: APIXABAN
     Indication: Atrial fibrillation
     Dosage: 10 MILLIGRAM, ONCE DAILY (QD)(DOSAGE FORM: UNSPECIFIED, OFF LABEL DOSING FREQUENCY)ADDITIONAL INFO:
     Route: 042
     Dates: start: 20180207, end: 20180207
  5. APIXABAN [Suspect]
     Active Substance: APIXABAN
     Indication: Product used for unknown indication
     Dosage: 5 MG, (QD) ADDITIONAL INFO: OLU: OFF LABEL DOSING FREQUENCY
     Route: 042
     Dates: start: 20180207, end: 20180207
  6. APIXABAN [Suspect]
     Active Substance: APIXABAN
     Indication: Cerebrovascular accident prophylaxis
  7. BISOPROLOL FUMARATE [Suspect]
     Active Substance: BISOPROLOL FUMARATE
     Indication: Cerebrovascular accident prophylaxis
     Dosage: 10 MILLIGRAM, ONCE DAILY (QD)
     Route: 048
  8. BISOPROLOL FUMARATE [Suspect]
     Active Substance: BISOPROLOL FUMARATE
     Indication: Product used for unknown indication
     Dosage: 5 MILLIGRAM, ONCE DAILY (QD)
     Route: 048
     Dates: start: 20180207, end: 20180207
  9. BISOPROLOL FUMARATE [Suspect]
     Active Substance: BISOPROLOL FUMARATE
     Dosage: 3 MILLIGRAM, ONCE DAILY (QD), MORNING
     Route: 048
  10. CANDESARTAN CILEXETIL [Suspect]
     Active Substance: CANDESARTAN CILEXETIL
     Indication: Cerebrovascular accident prophylaxis
     Dosage: 2 MILLIGRAM, ONCE DAILY (QD)
     Route: 048
  11. CANDESARTAN CILEXETIL [Suspect]
     Active Substance: CANDESARTAN CILEXETIL
     Indication: Product used for unknown indication
  12. DIGOXIN [Suspect]
     Active Substance: DIGOXIN
     Indication: Cerebrovascular accident prophylaxis
     Dosage: 62.5 MICROGRAM, ONCE DAILY (QD) (MORNING)
  13. DIGOXIN [Suspect]
     Active Substance: DIGOXIN
     Indication: Product used for unknown indication
     Dosage: 1 MICROGRAM, ONCE DAILY (QD)
  14. DIGOXIN [Suspect]
     Active Substance: DIGOXIN
     Dosage: 10 MILLIGRAM PER MILLILITRE, ONCE DAILY (QD)
     Route: 050
  15. HYDROCHLOROTHIAZIDE [Suspect]
     Active Substance: HYDROCHLOROTHIAZIDE
     Indication: Cerebrovascular accident prophylaxis
     Dosage: 10 MILLIGRAM, QD; 10MG/ML
  16. HYDROCHLOROTHIAZIDE [Suspect]
     Active Substance: HYDROCHLOROTHIAZIDE
     Indication: Product used for unknown indication
     Dosage: 1DOSAGE FORM, QD (MORNING)
     Route: 048
  17. HYDROCHLOROTHIAZIDE [Suspect]
     Active Substance: HYDROCHLOROTHIAZIDE
     Dosage: 2 MILLIGRAM, ONCE DAILY (QD) (MORNING)
     Route: 048
  18. HYDROCHLOROTHIAZIDE [Suspect]
     Active Substance: HYDROCHLOROTHIAZIDE
     Dosage: 50 MILLIGRAM, ONCE DAILY (QD)
     Route: 048
  19. LANSOPRAZOLE [Suspect]
     Active Substance: LANSOPRAZOLE
     Indication: Atrial fibrillation
     Dosage: 5 MILLIGRAM, ONCE DAILY (QD)
     Route: 065
     Dates: start: 20180218, end: 20180218
  20. LANSOPRAZOLE [Suspect]
     Active Substance: LANSOPRAZOLE
     Indication: Product used for unknown indication
     Dosage: 10 MG (1 DAY) / 1 / 10 MILLIGRAM / 1 DAYS
     Dates: start: 20180207, end: 20180207
  21. LANSOPRAZOLE [Suspect]
     Active Substance: LANSOPRAZOLE
     Dosage: 10 MILLIGRAM, QD; 5MG, QD
     Dates: start: 20180207, end: 20180207
  22. LANSOPRAZOLE [Suspect]
     Active Substance: LANSOPRAZOLE
     Dosage: 10 MILLIGRAM, ONCE DAILY (QD)
     Dates: end: 20180218
  23. LANSOPRAZOLE [Suspect]
     Active Substance: LANSOPRAZOLE
     Dosage: 30 MILLIGRAM, ONCE DAILY (QD)(MORNING)
     Dates: start: 20180207, end: 20180207
  24. LANSOPRAZOLE [Suspect]
     Active Substance: LANSOPRAZOLE
     Dosage: 50 MILLIGRAM
  25. LEVOTHYROXINE SODIUM [Suspect]
     Active Substance: LEVOTHYROXINE SODIUM
     Indication: Product used for unknown indication
     Dosage: 1 DOSAGE FORM
  26. LEVOTHYROXINE SODIUM [Suspect]
     Active Substance: LEVOTHYROXINE SODIUM
     Dosage: MISUSE,OFF LABEL USE
  27. LEVOTHYROXINE SODIUM [Suspect]
     Active Substance: LEVOTHYROXINE SODIUM
     Dosage: 1 DF - 50G, ONCE DAILY (QD)ADDITIONAL INFO: MISUSE,OFF LABEL USE
  28. LEVOTHYROXINE SODIUM [Suspect]
     Active Substance: LEVOTHYROXINE SODIUM
     Dosage: 12 MICROGRAM, QDADDITIONAL INFO: MISUSE,OFF LABEL USE
     Route: 048
  29. LEVOTHYROXINE SODIUM [Suspect]
     Active Substance: LEVOTHYROXINE SODIUM
     Dosage: 30 MG, ONCE DAILY MORNINGADDITIONAL INFO: MISUSE,OFF LABEL USE
  30. LEVOTHYROXINE SODIUM [Suspect]
     Active Substance: LEVOTHYROXINE SODIUM
     Dosage: 10 MG, QD (10 MILLIGRAM, QD; 5MG, QD)ADDITIONAL INFO: MISUSE,OFF LABEL USE
  31. LEVOTHYROXINE SODIUM [Suspect]
     Active Substance: LEVOTHYROXINE SODIUM
     Dosage: 50 MCG, QD (50 MCG MORNING)ADDITIONAL INFO: MISUSE,OFF LABEL USE
  32. LEVOTHYROXINE SODIUM [Suspect]
     Active Substance: LEVOTHYROXINE SODIUM
     Dosage: 1 DF - 50G, ONCE DAILY (QD)125 UG, QD (MORNING)ADDITIONAL INFO: MISUSE,OFF LABEL USE
     Route: 066
  33. LEVOTHYROXINE SODIUM [Suspect]
     Active Substance: LEVOTHYROXINE SODIUM
     Dosage: 50 MILLIGRAM
  34. LEVOTHYROXINE SODIUM [Suspect]
     Active Substance: LEVOTHYROXINE SODIUM
     Dosage: UNK125 MICROGRAM, QD (MORNING)ADDITIONAL INFO: MISUSE,OFF LABEL USE
  35. LINAGLIPTIN [Suspect]
     Active Substance: LINAGLIPTIN
     Indication: Product used for unknown indication
     Dosage: 5 MG, ONCE DAILY (QD) (MORNING)
  36. SIMVASTATIN [Suspect]
     Active Substance: SIMVASTATIN
     Indication: Product used for unknown indication
     Dosage: 40 MILLIGRAM, HSADDITIONAL INFO: MISUSE,OFF LABEL USE,MISUSE,OFF LABEL USE,OFF LABEL USE,MISUSE
  37. SIMVASTATIN [Suspect]
     Active Substance: SIMVASTATIN
     Dosage: 40 MILLIGRAM, HSADDITIONAL INFO: MISUSE,OFF LABEL USE,MISUSE,OFF LABEL USE,OFF LABEL USE,MISUSE
  38. SIMVASTATIN [Suspect]
     Active Substance: SIMVASTATIN
     Dosage: 40 MILLIGRAM, ONCE DAILY (QD)ADDITIONAL INFO: MISUSE, OFF LABEL USESIMVASTATIN
     Route: 065
  39. SIMVASTATIN [Suspect]
     Active Substance: SIMVASTATIN
     Dosage: 40 MG, QD (NIGHT)ADDITIONAL INFO: MISUSE,OFF LABEL USE,MISUSE,OFF LABEL USE,OFF LABEL USE,MISUSE
     Route: 065
  40. SIMVASTATIN [Suspect]
     Active Substance: SIMVASTATIN
     Dosage: UNK40 MG, ONCE DAILY (QD)(NIGHT)ADDITIONAL INFO: MISUSE,OFF LABEL USE,MISUSE,OFF LABEL USE,OFF LABEL
     Route: 048
  41. ZOCOR [Suspect]
     Active Substance: SIMVASTATIN
     Indication: Product used for unknown indication
     Dosage: 40 MILLIGRAM, ONCE DAILY (QD)

REACTIONS (2)
  - Subarachnoid haemorrhage [Recovered/Resolved with Sequelae]
  - Intentional product misuse [Unknown]
